FAERS Safety Report 11872513 (Version 2)
Quarter: 2016Q1

REPORT INFORMATION
  Report Type: Spontaneous
  Country: IT (occurrence: IT)
  Receive Date: 20151228
  Receipt Date: 20160216
  Transmission Date: 20160526
  Serious: Yes (Death)
  Sender: FDA-Public Use
  Company Number: IT-TEVA-621435ISR

PATIENT
  Age: 38 Year
  Sex: Male
  Weight: 55 kg

DRUGS (5)
  1. ETHANOL [Interacting]
     Active Substance: ALCOHOL
     Indication: COMPLETED SUICIDE
  2. ALPRAZOLAM. [Suspect]
     Active Substance: ALPRAZOLAM
     Indication: COMPLETED SUICIDE
  3. ZOLPIDEM [Interacting]
     Active Substance: ZOLPIDEM\ZOLPIDEM TARTRATE
     Indication: COMPLETED SUICIDE
  4. DELORAZEPAM [Interacting]
     Active Substance: DELORAZEPAM
     Indication: COMPLETED SUICIDE
  5. TRIAZOLAM. [Interacting]
     Active Substance: TRIAZOLAM
     Indication: COMPLETED SUICIDE

REACTIONS (2)
  - Toxicity to various agents [Fatal]
  - Drug interaction [Fatal]
